FAERS Safety Report 13597033 (Version 4)
Quarter: 2017Q4

REPORT INFORMATION
  Report Type: Spontaneous
  Country: JP (occurrence: JP)
  Receive Date: 20170531
  Receipt Date: 20171026
  Transmission Date: 20180320
  Serious: Yes (Life-Threatening)
  Sender: FDA-Public Use
  Company Number: JP-ROCHE-1941284

PATIENT
  Age: 70 Year
  Sex: Female
  Weight: 29 kg

DRUGS (12)
  1. DOXORUBICIN HYDROCHLORIDE. [Concomitant]
     Active Substance: DOXORUBICIN HYDROCHLORIDE
     Route: 042
     Dates: start: 20140311, end: 20140403
  2. DOXORUBICIN HYDROCHLORIDE. [Concomitant]
     Active Substance: DOXORUBICIN HYDROCHLORIDE
     Indication: DIFFUSE LARGE B-CELL LYMPHOMA
     Route: 042
     Dates: start: 20140207, end: 20140207
  3. TREAKISYM [Suspect]
     Active Substance: BENDAMUSTINE HYDROCHLORIDE
     Indication: NON-HODGKIN^S LYMPHOMA
     Route: 042
     Dates: start: 20140618, end: 20140813
  4. DEXART [Suspect]
     Active Substance: DEXAMETHASONE SODIUM PHOSPHATE
     Indication: NON-HODGKIN^S LYMPHOMA
     Route: 042
     Dates: start: 20170208, end: 20170209
  5. RITUXAN [Suspect]
     Active Substance: RITUXIMAB
     Indication: DIFFUSE LARGE B-CELL LYMPHOMA
     Dosage: STRENGTH: 10MG/ML RITUXIMAB(GENETICAL RECOMBINATION)?FIRST CYCLE OF RITUXIMAB
     Route: 041
     Dates: start: 20140311, end: 20140403
  6. TREAKISYM [Suspect]
     Active Substance: BENDAMUSTINE HYDROCHLORIDE
     Route: 042
     Dates: start: 20170208, end: 20170209
  7. PIRARUBICIN HYDROCHLORIDE [Concomitant]
     Active Substance: PIRARUBICIN HYDROCHLORIDE
     Indication: DIFFUSE LARGE B-CELL LYMPHOMA
     Route: 042
     Dates: start: 20140207, end: 20140207
  8. RITUXAN [Suspect]
     Active Substance: RITUXIMAB
     Dosage: STRENGTH: 10MG/ML RITUXIMAB(GENETICAL RECOMBINATION)
     Route: 041
     Dates: start: 20140618, end: 20140813
  9. GRANISETRON HYDROCHLORIDE. [Concomitant]
     Active Substance: GRANISETRON HYDROCHLORIDE
     Route: 042
     Dates: start: 20170208, end: 20170209
  10. PIRARUBICIN HYDROCHLORIDE [Concomitant]
     Active Substance: PIRARUBICIN HYDROCHLORIDE
     Route: 042
     Dates: start: 20140311, end: 20140403
  11. CYCLOPHOSPHAMIDE. [Concomitant]
     Active Substance: CYCLOPHOSPHAMIDE
     Indication: DIFFUSE LARGE B-CELL LYMPHOMA
     Route: 042
     Dates: start: 20140207, end: 20140207
  12. RITUXAN [Suspect]
     Active Substance: RITUXIMAB
     Dosage: STRENGTH: 10MG/ML RITUXIMAB(GENETICAL RECOMBINATION)
     Route: 041
     Dates: start: 20170207, end: 20170207

REACTIONS (2)
  - Herpes zoster [Unknown]
  - Progressive multifocal leukoencephalopathy [Unknown]

NARRATIVE: CASE EVENT DATE: 201704
